FAERS Safety Report 14304002 (Version 1)
Quarter: 2017Q4

REPORT INFORMATION
  Report Type: Spontaneous
  Country: JP (occurrence: JP)
  Receive Date: 20171219
  Receipt Date: 20171219
  Transmission Date: 20180321
  Serious: Yes (Other)
  Sender: FDA-Public Use
  Company Number: JP-OTSUKA-JP-2012-15055

PATIENT
  Age: 13 Year
  Sex: Male

DRUGS (5)
  1. STRATTERA [Concomitant]
     Active Substance: ATOMOXETINE HYDROCHLORIDE
     Dosage: 70 MG, QD
     Route: 048
  2. ABILIFY [Suspect]
     Active Substance: ARIPIPRAZOLE
     Dosage: 1.5 MG, BID
     Route: 048
     Dates: start: 201109
  3. ISOSORBIDE MONONITRATE. [Concomitant]
     Active Substance: ISOSORBIDE MONONITRATE
     Dosage: ISOBIDE
     Dates: start: 20120413
  4. ABILIFY [Suspect]
     Active Substance: ARIPIPRAZOLE
     Dosage: 1.5 MG, BID
     Route: 048
     Dates: start: 201109
  5. ISOBIDE [Concomitant]
     Active Substance: ISOSORBIDE
     Dosage: 63 G, QD
     Route: 048
     Dates: start: 20120413

REACTIONS (1)
  - Loss of consciousness [Unknown]

NARRATIVE: CASE EVENT DATE: 20120418
